FAERS Safety Report 17225394 (Version 2)
Quarter: 2020Q2

REPORT INFORMATION
  Report Type: Report from Study
  Country: US (occurrence: US)
  Receive Date: 20200102
  Receipt Date: 20200415
  Transmission Date: 20200713
  Serious: No
  Sender: FDA-Public Use
  Company Number: US-SA-2019SA362686

PATIENT
  Age: 36 Year
  Sex: Female

DRUGS (7)
  1. ALLEGRA-D [Concomitant]
     Active Substance: FEXOFENADINE\PSEUDOEPHEDRINE
     Dosage: 180-240MG
  2. DUPILUMAB [Suspect]
     Active Substance: DUPILUMAB
     Indication: DERMATITIS ATOPIC
     Dosage: 600 MG, 1X
     Route: 058
     Dates: start: 201910, end: 201910
  3. DUOBRIL [Concomitant]
     Dosage: 0.01-0.045 LOTION
  4. BENADRYL [Concomitant]
     Active Substance: DIPHENHYDRAMINE HYDROCHLORIDE
     Dosage: 2%-0.1% SPRAY
  5. DUPILUMAB [Suspect]
     Active Substance: DUPILUMAB
     Dosage: 300 MG, QOW
     Route: 058
     Dates: start: 2019, end: 202002
  6. XANAX [Concomitant]
     Active Substance: ALPRAZOLAM
  7. VENLAFAXINE [Concomitant]
     Active Substance: VENLAFAXINE HYDROCHLORIDE

REACTIONS (7)
  - Cough [Unknown]
  - Oral pain [Unknown]
  - Toothache [Not Recovered/Not Resolved]
  - Ear pain [Unknown]
  - Respiratory disorder [Unknown]
  - Asthenia [Unknown]
  - Ear discomfort [Unknown]

NARRATIVE: CASE EVENT DATE: 201911
